FAERS Safety Report 8132648-5 (Version None)
Quarter: 2012Q1

REPORT INFORMATION
  Report Type: 
  Country: None (occurrence: None)
  Receive Date: 20120213
  Receipt Date: 20120203
  Transmission Date: 20120608
  Serious: Yes (Hospitalization)
  Sender: FDA-Public Use
  Company Number: JP-GLAXOSMITHKLINE-B0771743A

PATIENT
  Age: 65 Year
  Sex: Female

DRUGS (3)
  1. DOGMATYL [Concomitant]
     Indication: DECREASED APPETITE
     Dosage: 100MG PER DAY
     Route: 048
     Dates: start: 20081002, end: 20081005
  2. NITRAZEPAM [Concomitant]
     Indication: INSOMNIA
     Dosage: 5MG PER DAY
     Route: 048
     Dates: start: 20081002, end: 20081005
  3. PAXIL [Suspect]
     Indication: DEPRESSION
     Dosage: 10MG PER DAY
     Route: 048
     Dates: start: 20081002, end: 20081005

REACTIONS (4)
  - ANXIETY [None]
  - RESTLESSNESS [None]
  - IRRITABILITY [None]
  - ACTIVATION SYNDROME [None]
